FAERS Safety Report 4941891-5 (Version None)
Quarter: 2006Q1

REPORT INFORMATION
  Report Type: 
  Country: None (occurrence: None)
  Receive Date: 20060307
  Receipt Date: 20060301
  Transmission Date: 20060701
  Serious: Yes (Other)
  Sender: FDA-Public Use
  Company Number: S06-USA-00723-01

PATIENT
  Age: 44 Year
  Sex: Male

DRUGS (5)
  1. LEXAPRO [Suspect]
     Indication: MAJOR DEPRESSION
     Dosage: 10 MG QD PO
     Route: 048
     Dates: start: 20051004
  2. LEXAPRO [Suspect]
     Indication: MAJOR DEPRESSION
     Dosage: 15 MG QD PO
     Route: 048
  3. WELLBUTRIN [Suspect]
     Indication: MAJOR DEPRESSION
     Dosage: 150 MG QD PO
     Route: 048
     Dates: start: 19991020, end: 20040118
  4. WELLBUTRIN [Suspect]
     Indication: MAJOR DEPRESSION
     Dosage: 300 MG QD PO
     Route: 048
     Dates: start: 20040119, end: 20060109
  5. WELLBUTRIN [Suspect]
     Indication: MAJOR DEPRESSION
     Dosage: 450 MG QD PO
     Route: 048
     Dates: start: 20060110

REACTIONS (2)
  - BIFASCICULAR BLOCK [None]
  - BLOOD PRESSURE INCREASED [None]
